FAERS Safety Report 4840628-8 (Version None)
Quarter: 2005Q4

REPORT INFORMATION
  Report Type: 
  Country: None (occurrence: None)
  Receive Date: 20051130
  Receipt Date: 20051115
  Transmission Date: 20060501
  Serious: Yes (Hospitalization)
  Sender: FDA-Public Use
  Company Number: 2005AP05929

PATIENT
  Age: 20129 Day
  Sex: Female
  Weight: 38.8 kg

DRUGS (8)
  1. IRESSA [Suspect]
     Indication: SQUAMOUS CELL CARCINOMA
     Route: 048
     Dates: start: 20050830, end: 20051116
  2. IRESSA [Suspect]
     Route: 048
     Dates: start: 20051122
  3. CISPLATIN [Suspect]
     Dosage: GIVEN DAY1-4, ON WEEKS 1, 4, 7
     Route: 042
     Dates: start: 20050920, end: 20050923
  4. CISPLATIN [Suspect]
     Dosage: GIVEN DAY1-4, ON WEEKS 1, 4, 7
     Route: 042
     Dates: start: 20051011, end: 20051014
  5. CISPLATIN [Suspect]
     Dosage: GIVEN DAY1-4, ON WEEKS 1, 4, 7
     Route: 042
     Dates: start: 20051031, end: 20051105
  6. RADIOTHERAPY [Suspect]
     Dosage: 70 GY
     Dates: start: 20050920, end: 20051109
  7. METFORMIN [Concomitant]
     Indication: DIABETES MELLITUS
     Route: 048
  8. GLIPIZIDE [Concomitant]
     Indication: DIABETES MELLITUS
     Route: 048

REACTIONS (3)
  - ODYNOPHAGIA [None]
  - ORAL INTAKE REDUCED [None]
  - STOMATITIS [None]
